FAERS Safety Report 5590888-3 (Version None)
Quarter: 2007Q4

REPORT INFORMATION
  Report Type: 
  Country: None (occurrence: None)
  Receive Date: 20071214
  Receipt Date: 20071026
  Transmission Date: 20080405
  Serious: No
  Sender: FDA-Public Use
  Company Number: 2007090108

PATIENT
  Age: 65 Year
  Sex: Male

DRUGS (3)
  1. ERAXIS [Suspect]
     Indication: PYREXIA
  2. ZYVOX [Concomitant]
  3. PRIMAXIN [Concomitant]

REACTIONS (1)
  - SUPRAVENTRICULAR TACHYCARDIA [None]
